FAERS Safety Report 7211487-3 (Version None)
Quarter: 2011Q1

REPORT INFORMATION
  Report Type: 
  Country: None (occurrence: None)
  Receive Date: 20110105
  Receipt Date: 20101227
  Transmission Date: 20110831
  Serious: Yes (Other)
  Sender: FDA-Public Use
  Company Number: US-ELI_LILLY_AND_COMPANY-US201011006230

PATIENT
  Age: 52 Year
  Sex: Male
  Weight: 84.807 kg

DRUGS (6)
  1. GLIMEPIRIDE [Concomitant]
     Dosage: 2 MG, 2/D
  2. CRESTOR [Concomitant]
     Dosage: 20 MG, UNKNOWN
  3. BYETTA [Suspect]
     Indication: TYPE 2 DIABETES MELLITUS
     Dosage: 5 UG, 2/D
     Route: 058
     Dates: start: 20080407, end: 20080428
  4. BYETTA [Suspect]
     Dosage: 10 UG, 2/D
     Dates: start: 20080428
  5. METFORMIN HCL [Concomitant]
     Dosage: 1000 D/F, 2/D
  6. LISINOPRIL [Concomitant]
     Dosage: 20 MG, UNKNOWN

REACTIONS (3)
  - PANCREATITIS [None]
  - BLOOD AMYLASE INCREASED [None]
  - WEIGHT DECREASED [None]
